FAERS Safety Report 15273883 (Version 1)
Quarter: 2018Q3

REPORT INFORMATION
  Report Type: Spontaneous
  Country: US (occurrence: FR)
  Receive Date: 20180813
  Receipt Date: 20180813
  Transmission Date: 20181010
  Serious: Yes (Disabling, Other)
  Sender: FDA-Public Use
  Company Number: FR-TEVA-2018-FR-940380

PATIENT

DRUGS (6)
  1. ZOPICLONE [Concomitant]
     Active Substance: ZOPICLONE
     Indication: SLEEP DISORDER
     Dosage: 1 DOSAGE FORMS DAILY; 1 TAB, QD
     Route: 048
     Dates: start: 20131222, end: 20141119
  2. LORAZEPAM. [Concomitant]
     Active Substance: LORAZEPAM
     Indication: ANXIETY
     Dosage: 1.5 TAB, UNK
     Route: 048
     Dates: start: 20131222, end: 20141119
  3. IMOVANE [Concomitant]
     Active Substance: ZOPICLONE
     Indication: PRODUCT USED FOR UNKNOWN INDICATION
     Dosage: UNK
     Route: 065
     Dates: start: 20131222, end: 20141119
  4. TEMESTA [Concomitant]
     Indication: PRODUCT USED FOR UNKNOWN INDICATION
     Dosage: UNK
     Route: 048
     Dates: start: 20131222, end: 20141119
  5. ARIPIPRAZOLE. [Suspect]
     Active Substance: ARIPIPRAZOLE
     Dosage: 20 MILLIGRAM DAILY;
     Route: 048
     Dates: start: 201401
  6. ARIPIPRAZOLE. [Suspect]
     Active Substance: ARIPIPRAZOLE
     Indication: ACUTE PSYCHOSIS
     Dosage: 15 MILLIGRAM DAILY; 15 MG, QD
     Route: 048
     Dates: start: 20131222

REACTIONS (4)
  - Blindness [Unknown]
  - Off label use [Unknown]
  - Hyperprolactinaemia [Unknown]
  - Galactorrhoea [Unknown]

NARRATIVE: CASE EVENT DATE: 201402
